FAERS Safety Report 7225927-7 (Version None)
Quarter: 2011Q1

REPORT INFORMATION
  Report Type: 
  Country: None (occurrence: None)
  Receive Date: 20110113
  Receipt Date: 20110110
  Transmission Date: 20110831
  Serious: Yes (Hospitalization, Other)
  Sender: FDA-Public Use
  Company Number: US-PFIZER INC-2011006336

PATIENT
  Sex: Female

DRUGS (3)
  1. PROTONIX [Suspect]
     Indication: GASTRITIS
     Dosage: 20 MG, 2X/DAY
     Route: 048
     Dates: start: 20100101, end: 20110101
  2. PROTONIX [Suspect]
     Indication: GASTROOESOPHAGEAL REFLUX DISEASE
  3. MORPHINE [Concomitant]
     Indication: PAIN
     Dosage: UNK

REACTIONS (4)
  - DECREASED APPETITE [None]
  - MALAISE [None]
  - WEIGHT DECREASED [None]
  - DRUG SCREEN FALSE POSITIVE [None]
